FAERS Safety Report 17674968 (Version 2)
Quarter: 2020Q2

REPORT INFORMATION
  Report Type: Spontaneous
  Country: IT (occurrence: IT)
  Receive Date: 20200416
  Receipt Date: 20200423
  Transmission Date: 20200714
  Serious: Yes (Hospitalization, Other)
  Sender: FDA-Public Use
  Company Number: IT-BRISTOL-MYERS SQUIBB COMPANY-BMS-2020-029068

PATIENT
  Age: 50 Year
  Sex: Male

DRUGS (6)
  1. STAVUDINE. [Suspect]
     Active Substance: STAVUDINE
     Indication: ANTIRETROVIRAL THERAPY
     Route: 065
  2. LAMIVUDINE. [Suspect]
     Active Substance: LAMIVUDINE
     Indication: ANTIRETROVIRAL THERAPY
     Dosage: UNK
     Route: 065
  3. TENOFOVIR DISOPROXIL FUMARATE. [Suspect]
     Active Substance: TENOFOVIR DISOPROXIL FUMARATE
     Indication: ANTIRETROVIRAL THERAPY
     Route: 065
  4. CRIXIVAN [Suspect]
     Active Substance: INDINAVIR SULFATE
     Indication: ANTIRETROVIRAL THERAPY
     Route: 065
  5. PRAVASTATIN SODIUM. [Concomitant]
     Active Substance: PRAVASTATIN SODIUM
     Indication: BLOOD TRIGLYCERIDES INCREASED
     Route: 065
  6. EFAVIRENZ. [Suspect]
     Active Substance: EFAVIRENZ
     Indication: ANTIRETROVIRAL THERAPY
     Route: 065

REACTIONS (1)
  - Posterior reversible encephalopathy syndrome [Recovered/Resolved]
